FAERS Safety Report 24030252 (Version 2)
Quarter: 2025Q4

REPORT INFORMATION
  Report Type: Report from Study
  Country: EU (occurrence: EU)
  Receive Date: 20240628
  Receipt Date: 20251124
  Transmission Date: 20260117
  Serious: Yes (Other)
  Sender: JOHNSON AND JOHNSON
  Company Number: EU-REMICADEPIB4003-3302-4041

PATIENT
  Age: 22 Year
  Sex: Female

DRUGS (6)
  1. SIMPONI [Suspect]
     Active Substance: GOLIMUMAB
     Indication: Crohn^s disease
     Route: 058
     Dates: start: 20151115, end: 20160106
  2. SIMPONI [Suspect]
     Active Substance: GOLIMUMAB
     Dosage: 100 MG
     Route: 058
     Dates: start: 20201001, end: 20201031
  3. REMICADE [Suspect]
     Active Substance: INFLIXIMAB
     Indication: Crohn^s disease
     Route: 041
     Dates: start: 20151026, end: 20151109
  4. STELARA [Suspect]
     Active Substance: USTEKINUMAB
     Indication: Crohn^s disease
     Route: 058
     Dates: start: 20160201, end: 20160502
  5. STELARA [Suspect]
     Active Substance: USTEKINUMAB
     Route: 058
     Dates: start: 20160812, end: 20160812
  6. STELARA [Suspect]
     Active Substance: USTEKINUMAB
     Route: 058
     Dates: start: 20150703, end: 20150703

REACTIONS (5)
  - Pyelonephritis [Recovered/Resolved]
  - Hidradenitis [Not Recovered/Not Resolved]
  - Tinea versicolour [Recovered/Resolved]
  - Product use in unapproved indication [Unknown]
  - Off label use [Unknown]

NARRATIVE: CASE EVENT DATE: 20200501
